FAERS Safety Report 13211689 (Version 2)
Quarter: 2017Q1

REPORT INFORMATION
  Report Type: Spontaneous
  Country: BR (occurrence: BR)
  Receive Date: 20170210
  Receipt Date: 20170308
  Transmission Date: 20170428
  Serious: Yes (Disabling)
  Sender: FDA-Public Use
  Company Number: BR-PFIZER INC-2017053456

PATIENT
  Sex: Female

DRUGS (7)
  1. CHAMPIX [Suspect]
     Active Substance: VARENICLINE TARTRATE
     Dosage: 1 MG, UNK
     Dates: start: 20161208, end: 20161211
  2. COSOPT [Concomitant]
     Active Substance: DORZOLAMIDE HYDROCHLORIDE\TIMOLOL MALEATE
     Dosage: UNK, 2X/DAY (RIGHT EYE)
  3. MAXIDEX [Concomitant]
     Active Substance: DEXAMETHASONE
     Dosage: UNK (LEFT EYE TWICE A DAY FOR 7 DAY, ONCE A DAY FOR 6 DAYS)
  4. LUMIGAN [Concomitant]
     Active Substance: BIMATOPROST
     Dosage: UNK, 1X/DAY (RIGHT EYE)
  5. CHAMPIX [Suspect]
     Active Substance: VARENICLINE TARTRATE
     Dosage: 0.5 MG, UNK
     Dates: start: 20161202, end: 20161207
  6. OSCAL D [Concomitant]
     Active Substance: CALCIUM CARBONATE\CHOLECALCIFEROL
     Dosage: UNK
  7. PURAN [Concomitant]
     Active Substance: LEVOTHYROXINE SODIUM
     Dosage: 72.5 MG, UNK

REACTIONS (6)
  - Gait disturbance [Unknown]
  - Labyrinthitis [Unknown]
  - Pain in extremity [Unknown]
  - Arthralgia [Unknown]
  - Disorientation [Unknown]
  - Musculoskeletal stiffness [Unknown]

NARRATIVE: CASE EVENT DATE: 201612
